FAERS Safety Report 7606691-6 (Version None)
Quarter: 2011Q3

REPORT INFORMATION
  Report Type: 
  Country: None (occurrence: None)
  Receive Date: 20110705
  Receipt Date: 20110628
  Transmission Date: 20111222
  Serious: Yes (Other)
  Sender: FDA-Public Use
  Company Number: 2011SP027100

PATIENT
  Age: 86 Year
  Sex: Male

DRUGS (12)
  1. L-CARBOCISTEINE [Concomitant]
  2. NAFTOPIDIL [Concomitant]
  3. IMIDAPRIL HYDROCHLORIDE [Concomitant]
  4. ATENOLOL [Concomitant]
  5. MIRTAZAPINE [Suspect]
     Indication: AGITATION
     Dosage: 15 MG;QD;PO
     Route: 048
     Dates: start: 20110517, end: 20110518
  6. MIRTAZAPINE [Suspect]
     Indication: SLEEP DISORDER
     Dosage: 15 MG;QD;PO
     Route: 048
     Dates: start: 20110517, end: 20110518
  7. MIRTAZAPINE [Suspect]
     Indication: AGGRESSION
     Dosage: 15 MG;QD;PO
     Route: 048
     Dates: start: 20110517, end: 20110518
  8. IFENPRODIL TARTRATE [Concomitant]
  9. DONEPEZIL HYDROCHLORIDE [Concomitant]
  10. DONEPEZIL HYDROCHLORIDE [Concomitant]
  11. AMANTADINE HCL [Concomitant]
  12. TIAPRIDE HYDROCHLORIDE [Concomitant]

REACTIONS (3)
  - SPEECH DISORDER [None]
  - LOSS OF CONSCIOUSNESS [None]
  - OFF LABEL USE [None]
